FAERS Safety Report 7276532-8 (Version None)
Quarter: 2011Q1

REPORT INFORMATION
  Report Type: 
  Country: None (occurrence: None)
  Receive Date: 20110204
  Receipt Date: 20110125
  Transmission Date: 20110831
  Serious: Yes (Hospitalization, Disabling, Other)
  Sender: FDA-Public Use
  Company Number: US-BAYER-2011-007812

PATIENT
  Age: 39 Year
  Sex: Male

DRUGS (1)
  1. CIPRO [Suspect]
     Indication: PROSTATE INFECTION
     Dosage: 500 MG, BID
     Route: 048
     Dates: start: 20101104, end: 20101120

REACTIONS (8)
  - CHEST PAIN [None]
  - ABDOMINAL PAIN [None]
  - MALAISE [None]
  - BURNING SENSATION [None]
  - BACK PAIN [None]
  - MYALGIA [None]
  - GASTRITIS [None]
  - GAIT DISTURBANCE [None]
